FAERS Safety Report 19130317 (Version 1)
Quarter: 2021Q2

REPORT INFORMATION
  Report Type: Spontaneous
  Country: US (occurrence: US)
  Receive Date: 20210413
  Receipt Date: 20210413
  Transmission Date: 20210717
  Serious: Yes (Other)
  Sender: FDA-Public Use
  Company Number: US-ASTRAZENECA-2021A282491

PATIENT
  Age: 74 Year
  Sex: Male
  Weight: 94.8 kg

DRUGS (5)
  1. ENTRESTO [Concomitant]
     Active Substance: SACUBITRIL\VALSARTAN
     Indication: CARDIAC DISORDER
     Dosage: TWO TIMES A DAY, 77?103MG
     Route: 048
     Dates: start: 2001
  2. FUROSOMIDE [Concomitant]
     Route: 048
  3. BRILINTA [Suspect]
     Active Substance: TICAGRELOR
     Indication: STENT PLACEMENT
     Route: 048
     Dates: start: 2015
  4. ROSUVASTATIN. [Suspect]
     Active Substance: ROSUVASTATIN
     Indication: BLOOD CHOLESTEROL
     Route: 048
  5. CARVEDILOL. [Concomitant]
     Active Substance: CARVEDILOL
     Route: 048

REACTIONS (5)
  - Product dose omission issue [Unknown]
  - Myocardial infarction [Unknown]
  - Product packaging quantity issue [Unknown]
  - Product dose omission in error [Unknown]
  - Coronary artery occlusion [Unknown]

NARRATIVE: CASE EVENT DATE: 2016
